FAERS Safety Report 15652599 (Version 1)
Quarter: 2018Q4

REPORT INFORMATION
  Report Type: Spontaneous
  Country: US (occurrence: US)
  Receive Date: 20181123
  Receipt Date: 20181123
  Transmission Date: 20190205
  Serious: No
  Sender: FDA-Public Use
  Company Number: US-NOVOPROD-571924

PATIENT
  Age: 84 Year
  Sex: Female

DRUGS (2)
  1. NOVOLOG [Suspect]
     Active Substance: INSULIN ASPART
     Indication: TYPE 2 DIABETES MELLITUS
     Dosage: 10 U, TID
     Route: 058
     Dates: start: 201710, end: 2017
  2. NOVOLOG [Suspect]
     Active Substance: INSULIN ASPART
     Dosage: 15 U, TID
     Route: 058
     Dates: start: 2017, end: 20171104

REACTIONS (5)
  - Headache [Recovered/Resolved]
  - Feeling cold [Recovering/Resolving]
  - Nervousness [Recovered/Resolved]
  - Bone pain [Recovering/Resolving]
  - Blood glucose increased [Not Recovered/Not Resolved]

NARRATIVE: CASE EVENT DATE: 201710
